FAERS Safety Report 8934472 (Version 1)
Quarter: 2012Q4

REPORT INFORMATION
  Report Type: 
  Country: DE (occurrence: DE)
  Receive Date: 20121129
  Receipt Date: 20121129
  Transmission Date: 20130627
  Serious: Yes (Hospitalization, Other)
  Sender: FDA-Public Use
  Company Number: DE-VERTEX PHARMACEUTICAL INC.-2012-025138

PATIENT

DRUGS (3)
  1. INCIVEK [Suspect]
     Indication: HEPATITIS C
  2. RIBAVIRIN [Suspect]
     Indication: HEPATITIS C
  3. PEGINTERFERON [Suspect]
     Indication: HEPATITIS C

REACTIONS (18)
  - Rash [Unknown]
  - Anaemia [Unknown]
  - Laboratory test abnormal [Unknown]
  - Influenza like illness [Unknown]
  - Infection [Unknown]
  - Dry skin [Unknown]
  - Respiratory disorder [Unknown]
  - Gastrointestinal disorder [Unknown]
  - Off label use [Unknown]
  - Mental disorder [Unknown]
  - Nervous system disorder [Unknown]
  - Musculoskeletal disorder [Unknown]
  - Fatigue [Unknown]
  - Anorectal discomfort [Unknown]
  - Dysgeusia [Unknown]
  - Drug ineffective [Unknown]
  - Pruritus [Unknown]
  - Thrombocytopenia [Unknown]
